FAERS Safety Report 12674109 (Version 4)
Quarter: 2016Q3

REPORT INFORMATION
  Report Type: Spontaneous
  Country: US (occurrence: US)
  Receive Date: 20160822
  Receipt Date: 20160926
  Transmission Date: 20161109
  Serious: Yes (Hospitalization)
  Sender: FDA-Public Use
  Company Number: US-PFIZER INC-2016368853

PATIENT
  Age: 94 Year
  Sex: Female

DRUGS (1)
  1. VERAPAMIL HCL [Suspect]
     Active Substance: VERAPAMIL HYDROCHLORIDE
     Dosage: 1/2 TABLET TWICE A DAY

REACTIONS (4)
  - Drug ineffective [Unknown]
  - Feeling abnormal [Recovered/Resolved]
  - Product use issue [Unknown]
  - Blood pressure abnormal [Unknown]
